FAERS Safety Report 14457500 (Version 19)
Quarter: 2025Q1

REPORT INFORMATION
  Report Type: Spontaneous
  Country: US (occurrence: US)
  Receive Date: 20180130
  Receipt Date: 20250319
  Transmission Date: 20250409
  Serious: No
  Sender: PFIZER
  Company Number: US-PFIZER INC-2018037460

PATIENT
  Age: 75 Year
  Sex: Female
  Weight: 84 kg

DRUGS (19)
  1. IBRANCE [Suspect]
     Active Substance: PALBOCICLIB
     Indication: Breast cancer female
     Route: 048
     Dates: start: 2015, end: 2015
  2. IBRANCE [Suspect]
     Active Substance: PALBOCICLIB
     Indication: Breast cancer metastatic
     Dates: start: 2015, end: 2015
  3. IBRANCE [Suspect]
     Active Substance: PALBOCICLIB
     Route: 048
     Dates: start: 201511
  4. IBRANCE [Suspect]
     Active Substance: PALBOCICLIB
     Route: 048
     Dates: start: 20190114
  5. IBRANCE [Suspect]
     Active Substance: PALBOCICLIB
     Route: 048
     Dates: start: 20231024, end: 20231218
  6. IBRANCE [Suspect]
     Active Substance: PALBOCICLIB
     Route: 048
  7. TOLTERODINE [Concomitant]
     Active Substance: TOLTERODINE
  8. IRON [Concomitant]
     Active Substance: IRON
  9. ALPRAZOLAM [Concomitant]
     Active Substance: ALPRAZOLAM
  10. CITALOPRAM [Concomitant]
     Active Substance: CITALOPRAM
  11. DICLOFENAC [Concomitant]
     Active Substance: DICLOFENAC
  12. GABAPENTIN [Concomitant]
     Active Substance: GABAPENTIN
  13. LETROZOLE [Concomitant]
     Active Substance: LETROZOLE
  14. OMEPRAZOLE [Concomitant]
     Active Substance: OMEPRAZOLE
  15. PRAVASTATIN [Concomitant]
     Active Substance: PRAVASTATIN
  16. PRIMIDONE [Concomitant]
     Active Substance: PRIMIDONE
  17. PROPRANOLOL [Concomitant]
     Active Substance: PROPRANOLOL HYDROCHLORIDE
  18. FEMARA [Concomitant]
     Active Substance: LETROZOLE
     Dosage: UNK, DAILY
  19. XANAX [Concomitant]
     Active Substance: ALPRAZOLAM
     Dosage: 1 DF, 2X/DAY
     Route: 048

REACTIONS (9)
  - Feeling abnormal [Unknown]
  - Tremor [Not Recovered/Not Resolved]
  - Movement disorder [Not Recovered/Not Resolved]
  - Condition aggravated [Not Recovered/Not Resolved]
  - Illness [Unknown]
  - Weight increased [Unknown]
  - Diarrhoea [Not Recovered/Not Resolved]
  - Haemoglobin decreased [Not Recovered/Not Resolved]
  - Off label use [Unknown]

NARRATIVE: CASE EVENT DATE: 20231024
